FAERS Safety Report 9301628 (Version 1)
Quarter: 2013Q2

REPORT INFORMATION
  Report Type: Spontaneous
  Country: BR (occurrence: BR)
  Receive Date: 20130521
  Receipt Date: 20130521
  Transmission Date: 20140414
  Serious: Yes (Hospitalization)
  Sender: FDA-Public Use
  Company Number: BR-TEVA-406360ISR

PATIENT
  Sex: Female

DRUGS (10)
  1. FLUOXETINE [Suspect]
     Indication: PANIC DISORDER
     Dosage: 2 TABLET DAILY;
     Route: 048
     Dates: start: 2009
  2. PURAN T4 [Suspect]
     Indication: HYPOTHYROIDISM
     Dosage: 150 MICROGRAM DAILY;
     Route: 048
     Dates: start: 1983
  3. RIVOTRIL [Suspect]
     Indication: INSOMNIA
     Dosage: 2 MILLIGRAM DAILY;
     Route: 048
     Dates: start: 2000
  4. CAPTOPRIL [Suspect]
     Indication: HYPERTENSION
     Dosage: 25 MILLIGRAM DAILY;
     Route: 048
     Dates: start: 2007
  5. ZESTIM [Suspect]
     Indication: HYPERCHOLESTEROLAEMIA
     Dosage: 1 DOSAGE FORMS DAILY; DOSAGE FORM: EZETIMIBE 10MG + SIMVASTATIN 20MG
     Route: 048
     Dates: start: 2008
  6. ZESTIM [Suspect]
     Indication: HYPERTRIGLYCERIDAEMIA
  7. ACCUVIT [Suspect]
     Indication: EYE DISORDER
     Dosage: 1 TABLET DAILY;
     Route: 048
     Dates: start: 2011
  8. TRAVATAN 0.004 % OPHTHALMIC SOLUTION (TRAVATAN 0.004%) [Suspect]
     Indication: GLAUCOMA
     Dosage: 2 GTT DAILY;
     Route: 047
     Dates: start: 201105
  9. GLAFITAL [Suspect]
     Indication: GLAUCOMA
     Dosage: 8 GTT DAILY; DAILY DOSE: 2 DROPS EACH EYE TWICE A DAY
     Route: 047
     Dates: start: 201105
  10. ARTROLIVE [Suspect]
     Indication: OSTEOARTHRITIS
     Dosage: 2 TABLET DAILY; DOSAGE FORM: GLUCOSAMINE SULFATE 500MG + CHONDROITIN SULFATE 400MG
     Route: 048
     Dates: start: 201205, end: 20130506

REACTIONS (4)
  - Pancreatic enlargement [Not Recovered/Not Resolved]
  - Osteoarthritis [Not Recovered/Not Resolved]
  - Eye disorder [Not Recovered/Not Resolved]
  - Off label use [Unknown]
